FAERS Safety Report 5194693-1 (Version None)
Quarter: 2006Q4

REPORT INFORMATION
  Report Type: 
  Country: None (occurrence: None)
  Receive Date: 20061229
  Receipt Date: 20061017
  Transmission Date: 20070319
  Serious: Yes (Hospitalization)
  Sender: FDA-Public Use
  Company Number: GB-JNJFOC-20061003820

PATIENT
  Sex: Female

DRUGS (3)
  1. INFLIXIMAB [Suspect]
     Indication: BEHCET'S SYNDROME
     Dosage: RECEIVED 4-5 INFUSIONS
     Route: 042
  2. METHOTREXATE [Suspect]
     Indication: PUSTULAR PSORIASIS
     Route: 065
  3. FOLIC ACID [Suspect]
     Indication: PUSTULAR PSORIASIS
     Route: 065

REACTIONS (2)
  - HYPERSENSITIVITY [None]
  - PUSTULAR PSORIASIS [None]
